FAERS Safety Report 6375938-9 (Version None)
Quarter: 2009Q3

REPORT INFORMATION
  Report Type: 
  Country: None (occurrence: None)
  Receive Date: 20090917
  Receipt Date: 20090904
  Transmission Date: 20100115
  Serious: Yes (Other)
  Sender: FDA-Public Use
  Company Number: ADR17492009

PATIENT
  Age: 38 Year

DRUGS (2)
  1. CITALOPRAM, 30MG [Suspect]
     Indication: DEPRESSION
     Dosage: ORAL
     Route: 048
     Dates: start: 20060720
  2. ARIPIPRAZOLE [Concomitant]

REACTIONS (1)
  - AKATHISIA [None]
